FAERS Safety Report 25612692 (Version 2)
Quarter: 2025Q3

REPORT INFORMATION
  Report Type: Spontaneous
  Country: US (occurrence: US)
  Receive Date: 20250728
  Receipt Date: 20250804
  Transmission Date: 20251020
  Serious: No
  Sender: ROCHE
  Company Number: US-ROCHE-10000343200

PATIENT
  Sex: Female

DRUGS (1)
  1. XOLAIR [Suspect]
     Active Substance: OMALIZUMAB
     Indication: Product used for unknown indication
     Route: 058
     Dates: start: 20250716

REACTIONS (4)
  - Product dose omission issue [Unknown]
  - Device breakage [Unknown]
  - No adverse event [Unknown]
  - Device defective [Unknown]

NARRATIVE: CASE EVENT DATE: 20250716
